FAERS Safety Report 15967297 (Version 1)
Quarter: 2019Q1

REPORT INFORMATION
  Report Type: Spontaneous
  Country: US (occurrence: US)
  Receive Date: 20190215
  Receipt Date: 20190215
  Transmission Date: 20190418
  Serious: Yes (Other)
  Sender: FDA-Public Use
  Company Number: None

PATIENT
  Sex: Female

DRUGS (4)
  1. INFUVITE [Concomitant]
     Active Substance: VITAMINS
     Dates: start: 20190207, end: 20190207
  2. THIAMINE. [Concomitant]
     Active Substance: THIAMINE
     Dates: start: 20190207, end: 20190207
  3. D5W (DEXTROSE 5% IN WATER) 500ML [Suspect]
     Active Substance: DEXTROSE
     Indication: HYPEREMESIS GRAVIDARUM
     Route: 041
     Dates: start: 20190207, end: 20190207
  4. FOLIC ACID. [Concomitant]
     Active Substance: FOLIC ACID
     Dates: start: 20190207, end: 20190207

REACTIONS (9)
  - Feeling abnormal [None]
  - Abdominal pain [None]
  - Infusion related reaction [None]
  - Exposure during pregnancy [None]
  - Chest pain [None]
  - Dyspnoea [None]
  - Oxygen saturation decreased [None]
  - Pallor [None]
  - Erythema [None]

NARRATIVE: CASE EVENT DATE: 20190207
